FAERS Safety Report 19157503 (Version 1)
Quarter: 2021Q2

REPORT INFORMATION
  Report Type: Report from Study
  Country: None (occurrence: US)
  Receive Date: 20210420
  Receipt Date: 20210420
  Transmission Date: 20210717
  Serious: Yes (Other)
  Sender: FDA-Public Use
  Company Number: US-ABBVIE-21K-163-3814983-00

PATIENT
  Age: 66 Year
  Sex: Female
  Weight: 70.37 kg

DRUGS (11)
  1. LISINOPRIL. [Concomitant]
     Active Substance: LISINOPRIL
     Indication: HYPERTENSION
  2. COVID?19 VACCINE NOS. [Concomitant]
     Active Substance: COVID-19 VACCINE NOS
     Indication: COVID-19 IMMUNISATION
     Dosage: JOHNSON AND JOHNSON
     Route: 030
     Dates: start: 20210310, end: 20210310
  3. TYLENOL [Concomitant]
     Active Substance: ACETAMINOPHEN
     Indication: PAIN
  4. CREON [Suspect]
     Active Substance: PANCRELIPASE AMYLASE\PANCRELIPASE LIPASE\PANCRELIPASE PROTEASE
     Indication: PANCREATITIS CHRONIC
     Dosage: 2 CAPSULES IN EACH MEAL
     Route: 048
     Dates: start: 2015
  5. CODEINE [Concomitant]
     Active Substance: CODEINE
     Indication: PAIN
  6. PANTOPRAZOLE [Concomitant]
     Active Substance: PANTOPRAZOLE
     Indication: GASTROOESOPHAGEAL REFLUX DISEASE
  7. DONEPEZIL. [Concomitant]
     Active Substance: DONEPEZIL
     Indication: COGNITIVE DISORDER
  8. GABAPENTIN. [Concomitant]
     Active Substance: GABAPENTIN
     Indication: FIBROMYALGIA
  9. DICYCLOMINE [Concomitant]
     Active Substance: DICYCLOMINE HYDROCHLORIDE
     Indication: IRRITABLE BOWEL SYNDROME
  10. DULOXETINE. [Concomitant]
     Active Substance: DULOXETINE
     Indication: PAIN
  11. PRAVASTATIN. [Concomitant]
     Active Substance: PRAVASTATIN
     Indication: BLOOD CHOLESTEROL INCREASED

REACTIONS (16)
  - Ageusia [Not Recovered/Not Resolved]
  - Sinus disorder [Recovering/Resolving]
  - Fall [Recovering/Resolving]
  - Post procedural diarrhoea [Not Recovered/Not Resolved]
  - Unevaluable event [Recovered/Resolved]
  - Foot fracture [Recovering/Resolving]
  - Gait inability [Recovering/Resolving]
  - Head injury [Recovering/Resolving]
  - Feeding disorder [Not Recovered/Not Resolved]
  - Abdominal discomfort [Not Recovered/Not Resolved]
  - Anosmia [Not Recovered/Not Resolved]
  - Sinusitis bacterial [Recovering/Resolving]
  - Accident [Unknown]
  - Sinusitis fungal [Recovering/Resolving]
  - Procedural headache [Not Recovered/Not Resolved]
  - Decreased appetite [Not Recovered/Not Resolved]

NARRATIVE: CASE EVENT DATE: 20210222
